FAERS Safety Report 6130711-1 (Version None)
Quarter: 2009Q1

REPORT INFORMATION
  Report Type: 
  Country: None (occurrence: None)
  Receive Date: 20090323
  Receipt Date: 20090308
  Transmission Date: 20090719
  Serious: Yes (Hospitalization)
  Sender: FDA-Public Use
  Company Number: 2007S1003767

PATIENT
  Age: 76 Year
  Sex: Female
  Weight: 66.4066 kg

DRUGS (7)
  1. PHOSPHOSODA FLAVOR NOT SPECIFIED [Suspect]
     Indication: SIGMOIDOSCOPY
     Dosage: 90 ML;TOTAL;PO
     Route: 048
     Dates: start: 20060629, end: 20060629
  2. BENICAR [Concomitant]
  3. HYDROCHLOROTHIAZIDE [Concomitant]
  4. SPIRIVA [Concomitant]
  5. PREVACID [Concomitant]
  6. ASPIRIN [Concomitant]
  7. MULTIVITAMIN /00831701/ [Concomitant]

REACTIONS (12)
  - ABDOMINAL PAIN [None]
  - ANAEMIA [None]
  - DEHYDRATION [None]
  - DIALYSIS [None]
  - DISORIENTATION [None]
  - ELECTROLYTE IMBALANCE [None]
  - HYPOTENSION [None]
  - MEDICATION ERROR [None]
  - PALLOR [None]
  - PROCTALGIA [None]
  - RENAL FAILURE ACUTE [None]
  - RENAL TUBULAR NECROSIS [None]
